FAERS Safety Report 8775298 (Version 2)
Quarter: 2012Q4

REPORT INFORMATION
  Report Type: 
  Country: DE (occurrence: DE)
  Receive Date: 20120910
  Receipt Date: 20121019
  Transmission Date: 20130627
  Serious: Yes (Other)
  Sender: FDA-Public Use
  Company Number: DE-AMGEN-DEUSP2012056111

PATIENT
  Age: 45 Year
  Sex: Male
  Weight: 85 kg

DRUGS (1)
  1. ENBREL [Suspect]
     Indication: MUSCULOSKELETAL PAIN
     Dosage: 50 mg, UNK
     Dates: start: 201103

REACTIONS (5)
  - Blood pressure increased [Unknown]
  - Blood urine present [Unknown]
  - Syncope [Unknown]
  - Gait disturbance [Unknown]
  - Paraesthesia [Unknown]
